FAERS Safety Report 6288004-8 (Version None)
Quarter: 2009Q3

REPORT INFORMATION
  Report Type: 
  Country: None (occurrence: None)
  Receive Date: 20090729
  Receipt Date: 20090716
  Transmission Date: 20100115
  Serious: Yes (Hospitalization, Other)
  Sender: FDA-Public Use
  Company Number: IE-JNJFOC-20090601613

PATIENT
  Sex: Male

DRUGS (7)
  1. PREZISTA [Suspect]
     Indication: HIV INFECTION
     Route: 048
  2. RITONAVIR [Concomitant]
     Indication: HIV INFECTION
     Route: 048
  3. TENOFOVIR [Concomitant]
     Indication: HIV INFECTION
     Route: 048
  4. EFAVIRENZ [Concomitant]
     Indication: HIV INFECTION
     Route: 048
  5. RALTEGRAVIR [Concomitant]
     Indication: HIV INFECTION
     Route: 048
  6. ENFUVIRTIDE [Concomitant]
     Indication: HIV INFECTION
     Route: 065
  7. INSULIN [Concomitant]
     Route: 065

REACTIONS (3)
  - DIABETES MELLITUS [None]
  - NEUROPATHY PERIPHERAL [None]
  - VITAMIN B12 DEFICIENCY [None]
